FAERS Safety Report 7934636-8 (Version None)
Quarter: 2011Q4

REPORT INFORMATION
  Report Type: 
  Country: None (occurrence: None)
  Receive Date: 20111122
  Receipt Date: 20111111
  Transmission Date: 20120403
  Serious: No
  Sender: FDA-Public Use
  Company Number: US-B.I. PHARMACEUTICALS,INC./RIDGEFIELD-2011-BP-24073BP

PATIENT
  Age: 89 Year
  Sex: Female

DRUGS (2)
  1. PRADAXA [Suspect]
     Indication: ATRIAL FIBRILLATION
     Dosage: 300 MG
     Route: 048
     Dates: start: 20111007
  2. PRADAXA [Suspect]
     Dosage: 150 MG
     Route: 048

REACTIONS (2)
  - DIZZINESS [None]
  - BALANCE DISORDER [None]
